APPROVED DRUG PRODUCT: DIFLORASONE DIACETATE
Active Ingredient: DIFLORASONE DIACETATE
Strength: 0.05%
Dosage Form/Route: OINTMENT;TOPICAL
Application: A206572 | Product #001
Applicant: SCIEGEN PHARMACEUTICALS INC
Approved: Jul 24, 2015 | RLD: No | RS: No | Type: DISCN